FAERS Safety Report 16323608 (Version 4)
Quarter: 2025Q4

REPORT INFORMATION
  Report Type: Spontaneous
  Country: EU (occurrence: EU)
  Receive Date: 20190517
  Receipt Date: 20251211
  Transmission Date: 20260118
  Serious: Yes (Death, Hospitalization)
  Sender: ROCHE
  Company Number: EU-ROCHE-2317673

PATIENT
  Age: 75 Year
  Sex: Male

DRUGS (4)
  1. PIRFENIDONE [Interacting]
     Active Substance: PIRFENIDONE
     Indication: Idiopathic pulmonary fibrosis
     Dosage: WEEK 1
  2. PIRFENIDONE [Interacting]
     Active Substance: PIRFENIDONE
     Dosage: WEEK 2
  3. PIRFENIDONE [Interacting]
     Active Substance: PIRFENIDONE
     Dosage: WEEK 3
  4. ESOMEPRAZOLE [Interacting]
     Active Substance: ESOMEPRAZOLE
     Indication: Gastrooesophageal reflux disease

REACTIONS (8)
  - Escherichia sepsis [Fatal]
  - Multiple organ dysfunction syndrome [Fatal]
  - Lactic acidosis [Fatal]
  - Acute hepatic failure [Unknown]
  - Pruritus [Unknown]
  - Drug-induced liver injury [Unknown]
  - Drug interaction [Unknown]
  - Photosensitivity reaction [Unknown]
